FAERS Safety Report 7134781-3 (Version None)
Quarter: 2010Q4

REPORT INFORMATION
  Report Type: 
  Country: None (occurrence: None)
  Receive Date: 20101203
  Receipt Date: 20101122
  Transmission Date: 20110411
  Serious: Yes (Hospitalization)
  Sender: FDA-Public Use
  Company Number: DE-ROCHE-745148

PATIENT
  Sex: Male
  Weight: 68.5 kg

DRUGS (2)
  1. BEVACIZUMAB [Suspect]
     Indication: ADENOCARCINOMA
     Route: 065
  2. FOLFIRI REGIMEN [Suspect]
     Indication: ADENOCARCINOMA
     Route: 065

REACTIONS (2)
  - DEHYDRATION [None]
  - GASTROENTERITIS CLOSTRIDIAL [None]
